FAERS Safety Report 7977354-2 (Version None)
Quarter: 2011Q4

REPORT INFORMATION
  Report Type: 
  Country: None (occurrence: None)
  Receive Date: 20111213
  Receipt Date: 20110124
  Transmission Date: 20120403
  Serious: Yes (Other)
  Sender: FDA-Public Use
  Company Number: PHHY2011BE100952

PATIENT
  Age: 71 Year
  Sex: Male

DRUGS (1)
  1. ZOLEDRONIC ACID [Suspect]
     Indication: PROSTATE CANCER METASTATIC

REACTIONS (8)
  - CONJUNCTIVAL HAEMORRHAGE [None]
  - CONJUNCTIVAL OEDEMA [None]
  - BLOOD THYROID STIMULATING HORMONE DECREASED [None]
  - EXOPHTHALMOS [None]
  - OCULAR HYPERAEMIA [None]
  - EYELID OEDEMA [None]
  - PAROPHTHALMIA [None]
  - EYE PAIN [None]
